FAERS Safety Report 15551247 (Version 2)
Quarter: 2018Q4

REPORT INFORMATION
  Report Type: Spontaneous
  Country: FR (occurrence: FR)
  Receive Date: 20181025
  Receipt Date: 20181120
  Transmission Date: 20190205
  Serious: Yes (Hospitalization, Other)
  Sender: FDA-Public Use
  Company Number: FR-PFIZER INC-2018432738

PATIENT
  Age: 66 Year
  Sex: Male
  Weight: 70 kg

DRUGS (9)
  1. SARIDON (PARACETAMOL) [Suspect]
     Active Substance: ACETAMINOPHEN
     Dosage: 500 MG, UNK
  2. ETOPOSIDE TEVA [Suspect]
     Active Substance: ETOPOSIDE
     Dosage: 280 MG, ONCE DAILY (QD)
     Route: 042
     Dates: start: 20151228, end: 20151230
  3. MITOXANTRONE HYDROCHLORIDE. [Suspect]
     Active Substance: MITOXANTRONE HYDROCHLORIDE
     Dosage: 19 MG, ONCE DAILY (QD)
     Route: 042
     Dates: start: 20151228, end: 20151228
  4. IFOSFAMIDE. [Suspect]
     Active Substance: IFOSFAMIDE
     Dosage: 2800 MG, ONCE DAILY (QD)
     Route: 042
     Dates: start: 20151228, end: 20151230
  5. POLARAMIN [Suspect]
     Active Substance: DEXCHLORPHENIRAMINE MALEATE
     Dosage: 5 MG, ONCE DAILY (QD)
     Route: 042
     Dates: start: 20151228, end: 20151228
  6. ONDANSETRON HYDROCHLORIDE. [Suspect]
     Active Substance: ONDANSETRON HYDROCHLORIDE
     Dosage: 8 MG, TWICE DAILY (BID)
     Route: 042
     Dates: start: 20151228, end: 20151230
  7. PARACETAMOL [Suspect]
     Active Substance: ACETAMINOPHEN
     Dosage: 500 MG, ONCE DAILY (QD)
     Route: 042
     Dates: start: 20151228
  8. METHYLPREDNISOLONE SODIUM SUCCINATE. [Suspect]
     Active Substance: METHYLPREDNISOLONE SODIUM SUCCINATE
     Dosage: 70 MG, ONCE DAILY (QD)
     Route: 042
     Dates: start: 20151228, end: 20151228
  9. MESNA. [Suspect]
     Active Substance: MESNA
     Dosage: 925 MG, THRICE DAILY (TID)
     Route: 042
     Dates: start: 20151228, end: 20151230

REACTIONS (1)
  - Febrile bone marrow aplasia [Recovered/Resolved]

NARRATIVE: CASE EVENT DATE: 20160108
